FAERS Safety Report 4765818-4 (Version None)
Quarter: 2005Q3

REPORT INFORMATION
  Report Type: 
  Country: None (occurrence: None)
  Receive Date: 20050906
  Receipt Date: 20050824
  Transmission Date: 20060218
  Serious: Yes (Hospitalization)
  Sender: FDA-Public Use
  Company Number: 2005120925

PATIENT
  Age: 56 Year
  Sex: Female

DRUGS (6)
  1. SPIRONOLACTONE [Suspect]
     Indication: ILL-DEFINED DISORDER
  2. FUROSEMIDE [Suspect]
     Indication: ILL-DEFINED DISORDER
  3. ASPIRIN [Suspect]
     Indication: ILL-DEFINED DISORDER
  4. FAMOTIDINE [Suspect]
     Indication: ILL-DEFINED DISORDER
  5. IMMUNOGLOBULINS (IMMUNOGLOBULINS) [Concomitant]
  6. METHYLPREDNISOLONE [Concomitant]

REACTIONS (1)
  - TOXIC EPIDERMAL NECROLYSIS [None]
